FAERS Safety Report 9518158 (Version 1)
Quarter: 2013Q3

REPORT INFORMATION
  Report Type: Spontaneous
  Country: US (occurrence: None)
  Receive Date: 20130910
  Receipt Date: 20130910
  Transmission Date: 20140515
  Serious: Yes (Other)
  Sender: FDA-Public Use
  Company Number: None

PATIENT
  Age: 63 Year
  Sex: Female
  Weight: 40.82 kg

DRUGS (4)
  1. PRAVASTATIN [Suspect]
     Indication: LOW DENSITY LIPOPROTEIN INCREASED
     Route: 048
     Dates: start: 20130816, end: 20130828
  2. INDRAL LA [Concomitant]
  3. DYAZIDE [Concomitant]
  4. AMILORIDE [Concomitant]

REACTIONS (5)
  - Muscular weakness [None]
  - Myalgia [None]
  - Dizziness [None]
  - Loss of consciousness [None]
  - Joint injury [None]
